FAERS Safety Report 7298576-2 (Version None)
Quarter: 2011Q1

REPORT INFORMATION
  Report Type: 
  Country: None (occurrence: None)
  Receive Date: 20110217
  Receipt Date: 20110214
  Transmission Date: 20110831
  Serious: Yes (Other)
  Sender: FDA-Public Use
  Company Number: BE-PFIZER INC-2010165804

PATIENT
  Age: 84 Year
  Sex: Male

DRUGS (9)
  1. TOVIAZ [Suspect]
     Dosage: 4 MG, 1X/DAY
     Route: 048
  2. BUSCOPAN [Concomitant]
     Dosage: 10 MG, UNK
  3. CONTRAMAL [Concomitant]
     Dosage: 100 MG, UNK
  4. TENORMIN [Concomitant]
     Dosage: 100 MG, UNK
  5. BURINEX [Concomitant]
     Dosage: UNK
  6. CORDARONE [Concomitant]
     Dosage: 200 MG, UNK
  7. ZOLPIDEM [Interacting]
     Dosage: 10 MG, UNK
     Route: 048
  8. SINTROM [Concomitant]
     Dosage: 1 MG, UNK
  9. VENLAFAXINE HCL [Interacting]
     Dosage: 75 MG, UNK
     Route: 048

REACTIONS (2)
  - CONFUSIONAL STATE [None]
  - DRUG INTERACTION [None]
